FAERS Safety Report 4761448-9 (Version None)
Quarter: 2005Q3

REPORT INFORMATION
  Report Type: 
  Country: None (occurrence: None)
  Receive Date: 20050830
  Receipt Date: 20050624
  Transmission Date: 20060218
  Serious: Yes (Other)
  Sender: FDA-Public Use
  Company Number: US_0411107650

PATIENT
  Sex: Female
  Weight: 60 kg

DRUGS (14)
  1. ZYPREXA [Suspect]
     Indication: HALLUCINATION
     Dosage: 20 MG
     Dates: start: 20011113, end: 20040706
  2. SYMBYAX [Suspect]
     Dates: start: 20021108, end: 20040605
  3. RISPERDAL [Concomitant]
  4. WELLBUTRIN [Concomitant]
  5. PAXI (PAROXETINE HYDROCHLORIDE) [Concomitant]
  6. AVANDIA [Concomitant]
  7. TRIAMTERENE [Concomitant]
  8. HYDROCHLOROTHIAZIDE [Concomitant]
  9. ROFECOXIB [Concomitant]
  10. RANITIDINE [Concomitant]
  11. LOSARTAN POTASSIUM [Concomitant]
  12. AVIANE-21 [Concomitant]
  13. NAPROXEN SODIUM [Concomitant]
  14. CITALOPRAM [Concomitant]

REACTIONS (10)
  - BLOOD GLUCOSE INCREASED [None]
  - DIABETES MELLITUS [None]
  - DIZZINESS POSTURAL [None]
  - HYPERGLYCAEMIA [None]
  - HYPERPHAGIA [None]
  - HYPERTENSION [None]
  - MUMPS [None]
  - POLYDIPSIA [None]
  - WEIGHT DECREASED [None]
  - WEIGHT INCREASED [None]
